FAERS Safety Report 8355900-7 (Version None)
Quarter: 2012Q2

REPORT INFORMATION
  Report Type: 
  Country: None (occurrence: None)
  Receive Date: 20120511
  Receipt Date: 20120511
  Transmission Date: 20120825
  Serious: Yes (Life-Threatening, Other)
  Sender: FDA-Public Use
  Company Number: None

PATIENT
  Age: 32 Year
  Sex: Female
  Weight: 104.3273 kg

DRUGS (1)
  1. LATUDA [Suspect]
     Indication: SLEEP DISORDER
     Dosage: 1 DAILY PO
     Route: 048
     Dates: start: 20111201, end: 20120501

REACTIONS (4)
  - POLLAKIURIA [None]
  - JOINT SWELLING [None]
  - SWELLING FACE [None]
  - OEDEMA PERIPHERAL [None]
